FAERS Safety Report 24326422 (Version 1)
Quarter: 2024Q3

REPORT INFORMATION
  Report Type: Spontaneous
  Country: US (occurrence: US)
  Receive Date: 20240917
  Receipt Date: 20240917
  Transmission Date: 20241017
  Serious: Yes (Other)
  Sender: HETERO
  Company Number: US-HETERO-HET2024US03087

PATIENT
  Age: 56 Year
  Sex: Female

DRUGS (5)
  1. NIMODIPINE [Suspect]
     Active Substance: NIMODIPINE
     Indication: Deafness neurosensory
     Dosage: 60 MILLIGRAM, SINGLE DOSE
     Route: 048
  2. APREPITANT [Concomitant]
     Active Substance: APREPITANT
     Indication: Antiemetic supportive care
     Dosage: 40 MILLIGRAM, A FOR POSTOPERATIVE NAUSEA AND VOMITING ALLEVIATION
     Route: 065
  3. SUCCINYLCHOLINE [Concomitant]
     Active Substance: SUCCINYLCHOLINE
     Indication: Product used for unknown indication
     Dosage: UNK
     Route: 065
  4. PROPOFOL [Concomitant]
     Active Substance: PROPOFOL
     Indication: General anaesthesia
     Dosage: 60-125 MICROGRAMS PER KG/MIN
     Route: 065
  5. REMIFENTANIL [Concomitant]
     Active Substance: REMIFENTANIL
     Indication: General anaesthesia
     Dosage: 0.2 MICROGRAMS/KG/MINUTE
     Route: 065

REACTIONS (1)
  - Toxicity to various agents [Unknown]
